FAERS Safety Report 6496846-9 (Version None)
Quarter: 2009Q4

REPORT INFORMATION
  Report Type: 
  Country: None (occurrence: None)
  Receive Date: 20091125
  Receipt Date: 20090422
  Transmission Date: 20100525
  Serious: Yes (Hospitalization, Other)
  Sender: FDA-Public Use
  Company Number: 2009BH006616

PATIENT
  Age: 39 Year
  Sex: Male

DRUGS (13)
  1. DIANEAL [Suspect]
     Indication: RENAL FAILURE CHRONIC
     Dosage: 14.5 L; EVERY DAY; IP
     Route: 033
     Dates: start: 20060221
  2. DIANEAL [Suspect]
     Indication: RENAL FAILURE CHRONIC
     Dosage: IP
     Route: 033
     Dates: start: 20060221
  3. NEPHROCAPS [Concomitant]
  4. PERCOCET [Concomitant]
  5. ROSUVASTATIN CALCIUM [Concomitant]
  6. HECTOROL [Concomitant]
  7. AMLOR [Concomitant]
  8. PREGABALIN [Concomitant]
  9. GENTAMYCIN CREAM [Concomitant]
  10. SENSIPAR [Concomitant]
  11. TUMS [Concomitant]
  12. RENAGEL [Concomitant]
  13. ESOMEPRAZOLE [Concomitant]

REACTIONS (2)
  - PERITONEAL DIALYSIS COMPLICATION [None]
  - PERITONITIS BACTERIAL [None]
